FAERS Safety Report 11741949 (Version 3)
Quarter: 2015Q4

REPORT INFORMATION
  Report Type: Report from Study
  Country: US (occurrence: US)
  Receive Date: 20151116
  Receipt Date: 20151223
  Transmission Date: 20160304
  Serious: Yes (Other)
  Sender: FDA-Public Use
  Company Number: US-AMGEN-USASL2015118879

PATIENT
  Age: 42 Year
  Sex: Male

DRUGS (1)
  1. ENBREL [Suspect]
     Active Substance: ETANERCEPT
     Indication: RHEUMATOID ARTHRITIS
     Dosage: 50 MG, QWK
     Route: 065
     Dates: start: 2015

REACTIONS (17)
  - Condition aggravated [Not Recovered/Not Resolved]
  - Injection site reaction [Unknown]
  - Injection site extravasation [Unknown]
  - Wrong technique in product usage process [Unknown]
  - Arthritis [Unknown]
  - Gait disturbance [Not Recovered/Not Resolved]
  - Pain in extremity [Unknown]
  - Erythema [Unknown]
  - Arthralgia [Unknown]
  - Cellulitis [Unknown]
  - Injection site erythema [Unknown]
  - Underdose [Unknown]
  - Rash macular [Unknown]
  - Device malfunction [Unknown]
  - Anaemia [Unknown]
  - Hypersensitivity [Unknown]
  - Skin warm [Unknown]

NARRATIVE: CASE EVENT DATE: 2015
